FAERS Safety Report 7621375-6 (Version None)
Quarter: 2011Q3

REPORT INFORMATION
  Report Type: 
  Country: None (occurrence: None)
  Receive Date: 20110719
  Receipt Date: 20110711
  Transmission Date: 20111222
  Serious: Yes (Death, Other)
  Sender: FDA-Public Use
  Company Number: US-BAYER-201042026NA

PATIENT
  Age: 59 Year
  Sex: Male

DRUGS (18)
  1. LANOXIN [Concomitant]
     Dosage: 0.125 MG, ONCE, LONG TERM USE
     Route: 048
  2. ANCEF [Concomitant]
     Dosage: 1.5 MG, UNK
     Route: 042
     Dates: start: 20000126
  3. SOLU-MEDROL [Concomitant]
     Dosage: 1 G, UNK
     Route: 042
     Dates: start: 20000126
  4. LOTENSIN [Concomitant]
     Dosage: 40 MG, ONCE
     Route: 048
  5. GLUCOPHAGE [Concomitant]
     Dosage: 500 MG, 5/DAY
  6. ZAROXOLYN [Concomitant]
     Dosage: 2.5 MG, UNK
  7. INSULIN [Concomitant]
     Dosage: AS NEEDED
     Route: 058
  8. GLUCOTROL [Concomitant]
  9. HYDRALAZINE HCL [Concomitant]
     Dosage: 100 MG, TID
     Route: 048
  10. ALLOPURINOL [Concomitant]
     Dosage: 100 MG, UNK
     Route: 048
  11. CAPTOPRIL [Concomitant]
     Dosage: 25 MG, TID
     Route: 048
  12. ADALAT CC [Concomitant]
     Dosage: 40 MG, EVERY OTEHR DAY
     Route: 048
  13. ATIVAN [Concomitant]
     Dosage: 4 MG, UNK
     Route: 042
     Dates: start: 20000126
  14. ZITHROMAX [Concomitant]
     Dosage: 250 MG, UNK
     Route: 048
     Dates: start: 20000103
  15. TRASYLOL [Suspect]
     Indication: TRANSMYOCARDIAL REVASCULARISATION
     Dosage: 1ML TEST DOSE
     Route: 042
     Dates: start: 20000126, end: 20000126
  16. LASIX [Concomitant]
     Dosage: 80 MG, ONCE, LONGTERM USE
     Route: 048
  17. CARDIZEM CD [Concomitant]
     Dosage: 300 MG, UNK
     Route: 048
  18. CARDURA [Concomitant]

REACTIONS (15)
  - ACUTE MYOCARDIAL INFARCTION [None]
  - CARDIAC DISORDER [None]
  - RENAL IMPAIRMENT [None]
  - RENAL INJURY [None]
  - DIABETES MELLITUS [None]
  - STRESS [None]
  - ANXIETY [None]
  - POST PROCEDURAL INFECTION [None]
  - EMOTIONAL DISTRESS [None]
  - PAIN [None]
  - INJURY [None]
  - RENAL FAILURE [None]
  - FEAR [None]
  - MULTI-ORGAN FAILURE [None]
  - UNEVALUABLE EVENT [None]
